FAERS Safety Report 12188494 (Version 3)
Quarter: 2016Q2

REPORT INFORMATION
  Report Type: Report from Study
  Country: CO (occurrence: CO)
  Receive Date: 20160317
  Receipt Date: 20160527
  Transmission Date: 20160815
  Serious: Yes (Hospitalization, Other)
  Sender: FDA-Public Use
  Company Number: CO-JNJFOC-20160310891

PATIENT
  Age: 30 Year
  Sex: Female
  Weight: 100 kg

DRUGS (1)
  1. RISPERDAL CONSTA [Suspect]
     Active Substance: RISPERIDONE
     Indication: BIPOLAR DISORDER
     Route: 030
     Dates: start: 20151126

REACTIONS (9)
  - Inappropriate schedule of drug administration [Unknown]
  - Off label use [Unknown]
  - Suicidal ideation [Not Recovered/Not Resolved]
  - Somnolence [Recovering/Resolving]
  - Anxiety [Recovering/Resolving]
  - Akathisia [Recovering/Resolving]
  - Depressed mood [Recovering/Resolving]
  - Disturbance in social behaviour [Not Recovered/Not Resolved]
  - Feeling of despair [Not Recovered/Not Resolved]

NARRATIVE: CASE EVENT DATE: 20151126
